FAERS Safety Report 7604058-8 (Version None)
Quarter: 2011Q3

REPORT INFORMATION
  Report Type: 
  Country: None (occurrence: None)
  Receive Date: 20110712
  Receipt Date: 20110628
  Transmission Date: 20111222
  Serious: Yes (Other)
  Sender: FDA-Public Use
  Company Number: US-CELGENEUS-163-20785-11063826

PATIENT
  Sex: Male

DRUGS (1)
  1. THALOMID [Suspect]
     Indication: MYELOFIBROSIS
     Dosage: 50 MILLIGRAM
     Route: 048
     Dates: start: 20110501

REACTIONS (10)
  - BLINDNESS [None]
  - INSOMNIA [None]
  - DEAFNESS [None]
  - CONTUSION [None]
  - JOINT SWELLING [None]
  - POLLAKIURIA [None]
  - EXCORIATION [None]
  - NEUROPATHY PERIPHERAL [None]
  - HEADACHE [None]
  - DYSPNOEA [None]
